FAERS Safety Report 4890941-3 (Version None)
Quarter: 2006Q1

REPORT INFORMATION
  Report Type: 
  Country: None (occurrence: None)
  Receive Date: 20060123
  Receipt Date: 20060109
  Transmission Date: 20060701
  Serious: Yes (Other)
  Sender: FDA-Public Use
  Company Number: US200601001559

PATIENT
  Age: 50 Year
  Sex: Male

DRUGS (3)
  1. CIALIS [Suspect]
     Dosage: 20 MG ONCE A WEEK
     Dates: start: 20050101, end: 20060109
  2. DIOVAN [Concomitant]
  3. LIPITOR [Concomitant]

REACTIONS (1)
  - BLINDNESS UNILATERAL [None]
